FAERS Safety Report 24782003 (Version 1)
Quarter: 2024Q4

REPORT INFORMATION
  Report Type: Spontaneous
  Country: CN (occurrence: CN)
  Receive Date: 20241227
  Receipt Date: 20241227
  Transmission Date: 20250115
  Serious: Yes (Other)
  Sender: SANDOZ
  Company Number: CN-002147023-NVSC2024CN243891

PATIENT
  Age: 72 Year
  Sex: Male
  Weight: 75 kg

DRUGS (1)
  1. TOBRADEX [Suspect]
     Active Substance: DEXAMETHASONE\TOBRAMYCIN
     Indication: Symptomatic treatment
     Dosage: 0.100 ML, QID (EXTERNAL USE)
     Route: 065
     Dates: start: 20241122, end: 20241122

REACTIONS (1)
  - Corneal exfoliation [Recovering/Resolving]

NARRATIVE: CASE EVENT DATE: 20241123
